FAERS Safety Report 24539046 (Version 1)
Quarter: 2024Q4

REPORT INFORMATION
  Report Type: Spontaneous
  Country: BR (occurrence: BR)
  Receive Date: 20241023
  Receipt Date: 20241023
  Transmission Date: 20250115
  Serious: Yes (Other)
  Sender: SANDOZ
  Company Number: BR-002147023-PHHY2019BR042078

PATIENT
  Sex: Female
  Weight: 73 kg

DRUGS (4)
  1. IMIPRAMINE PAMOATE [Suspect]
     Active Substance: IMIPRAMINE PAMOATE
     Indication: Depression
     Dosage: 1 DF, QD (CONCENTRATION: 75 MG)
     Route: 048
     Dates: end: 201904
  2. IMIPRAMINE PAMOATE [Suspect]
     Active Substance: IMIPRAMINE PAMOATE
     Dosage: 3 DF, QD (CONCENTRATION: 25 MG)
     Route: 048
     Dates: start: 201904
  3. IMIPRAMINE PAMOATE [Suspect]
     Active Substance: IMIPRAMINE PAMOATE
     Indication: Product used for unknown indication
     Dosage: UNK
     Route: 065
  4. ATENOLOL [Concomitant]
     Active Substance: ATENOLOL
     Indication: Hypertension
     Dosage: 1 DF, QD (OVER 10 YEAR AGO)
     Route: 048

REACTIONS (4)
  - Drug dependence [Unknown]
  - Diabetes mellitus [Recovering/Resolving]
  - Retching [Recovered/Resolved]
  - Hypertension [Recovering/Resolving]
